FAERS Safety Report 10192875 (Version 2)
Quarter: 2014Q2

REPORT INFORMATION
  Report Type: Spontaneous
  Country: US (occurrence: US)
  Receive Date: 20140523
  Receipt Date: 20140523
  Transmission Date: 20141212
  Serious: Yes (Other)
  Sender: FDA-Public Use
  Company Number: US-ABBVIE-04P-163-0250376-00

PATIENT
  Age: 51 Year
  Sex: Female
  Weight: 49.03 kg

DRUGS (24)
  1. HUMIRA [Suspect]
     Indication: RHEUMATOID ARTHRITIS
     Route: 058
     Dates: start: 200206
  2. HUMIRA [Suspect]
     Indication: RHEUMATOID ARTHRITIS
  3. PLAQUENIL [Suspect]
     Indication: PRODUCT USED FOR UNKNOWN INDICATION
  4. PREVACID [Concomitant]
     Indication: GASTROOESOPHAGEAL REFLUX DISEASE
     Route: 048
  5. SYNTHROID [Concomitant]
     Indication: HYPOTHYROIDISM
     Route: 048
  6. CYTOMEL [Concomitant]
     Indication: HYPOTHYROIDISM
     Route: 048
  7. CARDIZEM CD [Concomitant]
     Indication: MIGRAINE
     Route: 048
  8. CARDIZEM [Concomitant]
     Indication: MIGRAINE
     Route: 048
  9. RELAFEN [Concomitant]
     Indication: RHEUMATOID ARTHRITIS
     Route: 048
  10. DIFLUCAN [Concomitant]
     Indication: VAGINAL INFECTION
     Route: 048
  11. CHLORAL HYDRATE [Concomitant]
     Indication: SLEEP DISORDER
     Route: 048
  12. ESTRACE [Concomitant]
     Indication: MIGRAINE
     Route: 048
  13. FAMOTIDINE [Concomitant]
     Indication: GASTROOESOPHAGEAL REFLUX DISEASE
  14. PREVACID [Concomitant]
     Indication: GASTROOESOPHAGEAL REFLUX DISEASE
  15. LIPITOR [Concomitant]
     Indication: LOW DENSITY LIPOPROTEIN INCREASED
  16. LAMOTRIGINE [Concomitant]
     Indication: MIGRAINE
  17. SYNTHROID [Concomitant]
     Indication: HYPOTHYROIDISM
  18. ZOFRAN [Concomitant]
     Indication: MIGRAINE
  19. CODEINE [Concomitant]
     Indication: MIGRAINE
  20. PROPANOLOL [Concomitant]
     Indication: ESSENTIAL TREMOR
     Dosage: AS NEEDED, 1 TO 3 TIMES YEARLY
  21. RELAFEN [Concomitant]
     Indication: INFLAMMATION
  22. RELAFEN [Concomitant]
     Indication: PAIN
  23. PHENOBARBITOL [Concomitant]
     Indication: ESSENTIAL TREMOR
  24. XYREM [Concomitant]
     Indication: INSOMNIA

REACTIONS (11)
  - Retinopathy [Not Recovered/Not Resolved]
  - Arthritis [Recovering/Resolving]
  - Fall [Recovered/Resolved]
  - Tendon injury [Not Recovered/Not Resolved]
  - Tenosynovitis [Not Recovered/Not Resolved]
  - Oedema peripheral [Not Recovered/Not Resolved]
  - Laceration [Recovered/Resolved]
  - Periarthritis [Recovered/Resolved]
  - Toxicity to various agents [Not Recovered/Not Resolved]
  - Maculopathy [Not Recovered/Not Resolved]
  - Retinal scar [Not Recovered/Not Resolved]
